FAERS Safety Report 11514512 (Version 2)
Quarter: 2015Q3

REPORT INFORMATION
  Report Type: Spontaneous
  Country: US (occurrence: US)
  Receive Date: 20150916
  Receipt Date: 20150930
  Transmission Date: 20151125
  Serious: Yes (Hospitalization, Other)
  Sender: FDA-Public Use
  Company Number: US-SMITH AND NEPHEW, INC-2015SMT00301

PATIENT
  Age: 67 Year
  Sex: Male
  Weight: 51.25 kg

DRUGS (4)
  1. REGRANEX [Suspect]
     Active Substance: BECAPLERMIN
     Indication: WOUND
     Dosage: UNK, 1X/DAY
     Route: 061
     Dates: start: 2015, end: 2015
  2. REGRANEX [Suspect]
     Active Substance: BECAPLERMIN
     Dosage: UNK, EVERY 48 HOURS
     Dates: start: 2015
  3. INSULIN [Concomitant]
     Active Substance: INSULIN NOS
  4. UNSPECIFIED MEDICATIONS [Concomitant]
     Active Substance: UNSPECIFIED INGREDIENT

REACTIONS (12)
  - Asthenia [Unknown]
  - Musculoskeletal disorder [Unknown]
  - Hyporesponsive to stimuli [Recovering/Resolving]
  - Tremor [Not Recovered/Not Resolved]
  - Malaise [Not Recovered/Not Resolved]
  - Hypophagia [Recovering/Resolving]
  - Wheelchair user [Unknown]
  - Decreased activity [Not Recovered/Not Resolved]
  - Blood glucose increased [Not Recovered/Not Resolved]
  - Abasia [Unknown]
  - Pyrexia [Recovered/Resolved]
  - Strabismus [Not Recovered/Not Resolved]

NARRATIVE: CASE EVENT DATE: 2015
